FAERS Safety Report 10357806 (Version 1)
Quarter: 2014Q3

REPORT INFORMATION
  Report Type: Spontaneous
  Country: US (occurrence: None)
  Receive Date: 20140730
  Receipt Date: 20140730
  Transmission Date: 20150326
  Serious: No
  Sender: FDA-Public Use
  Company Number: None

PATIENT

DRUGS (1)
  1. JET ALERT [Suspect]
     Active Substance: CAFFEINE
     Dosage: NONE131009

REACTIONS (2)
  - Drug dependence [None]
  - Product label issue [None]
